FAERS Safety Report 9467821 (Version 1)
Quarter: 2013Q3

REPORT INFORMATION
  Report Type: Spontaneous
  Country: US (occurrence: US)
  Receive Date: 20130821
  Receipt Date: 20130821
  Transmission Date: 20140515
  Serious: No
  Sender: FDA-Public Use
  Company Number: US-BAYER-2013-098902

PATIENT
  Age: 49 Year
  Sex: Female
  Weight: 73 kg

DRUGS (7)
  1. BETASERON [Suspect]
     Dosage: 0.25 MG, QOD
     Route: 058
  2. OXYBUTYNIN [Concomitant]
     Dosage: 5MG/5ML
  3. PROZAC [Concomitant]
     Dosage: 10 MG, UNK
  4. IBUPROFEN [Concomitant]
     Dosage: 200 MG, UNK
  5. VITAMIN D [Concomitant]
  6. PROVIGIL [Concomitant]
     Dosage: 100 MG, UNK
  7. ACTHAR HP [Concomitant]

REACTIONS (2)
  - Musculoskeletal stiffness [Unknown]
  - Muscle tightness [Unknown]
